FAERS Safety Report 16570822 (Version 1)
Quarter: 2019Q3

REPORT INFORMATION
  Report Type: Spontaneous
  Country: US (occurrence: US)
  Receive Date: 20190715
  Receipt Date: 20190715
  Transmission Date: 20191004
  Serious: Yes (Other)
  Sender: FDA-Public Use
  Company Number: US-PFIZER INC-2019292825

PATIENT
  Sex: Female

DRUGS (2)
  1. ZOLOFT [Suspect]
     Active Substance: SERTRALINE HYDROCHLORIDE
     Indication: ANXIETY
     Dosage: 25 MG, 1X/DAY
     Dates: start: 201904
  2. TYLENOL [Suspect]
     Active Substance: ACETAMINOPHEN
     Dosage: UNK

REACTIONS (6)
  - Peripheral swelling [Unknown]
  - Weight decreased [Unknown]
  - Parkinson^s disease [Unknown]
  - Lupus-like syndrome [Unknown]
  - Skin lesion [Unknown]
  - Feeling abnormal [Unknown]
